FAERS Safety Report 7746865-7 (Version None)
Quarter: 2011Q3

REPORT INFORMATION
  Report Type: 
  Country: None (occurrence: None)
  Receive Date: 20110825
  Receipt Date: 20110503
  Transmission Date: 20111222
  Serious: No
  Sender: FDA-Public Use
  Company Number: 327588

PATIENT
  Sex: Male

DRUGS (1)
  1. VICTOZA [Suspect]
     Indication: WEIGHT DECREASED

REACTIONS (2)
  - GALLBLADDER DISORDER [None]
  - DRUG INEFFECTIVE FOR UNAPPROVED INDICATION [None]
